FAERS Safety Report 7367843-6 (Version None)
Quarter: 2011Q1

REPORT INFORMATION
  Report Type: 
  Country: None (occurrence: None)
  Receive Date: 20110322
  Receipt Date: 20110315
  Transmission Date: 20110831
  Serious: Yes (Hospitalization)
  Sender: FDA-Public Use
  Company Number: FR-PFIZER INC-2011056218

PATIENT
  Age: 72 Year
  Sex: Male

DRUGS (8)
  1. ZOPHREN [Suspect]
     Indication: PREMEDICATION
     Dosage: 8 MG, SINGLE
     Route: 042
     Dates: start: 20110223, end: 20110223
  2. CONTRAMAL [Concomitant]
     Dosage: UNKNOWN
  3. TAREG [Concomitant]
     Dosage: UNKNOWN
  4. ACETAMINOPHEN [Concomitant]
     Dosage: UNKNOWN
  5. FLUOROURACIL/FOLINIC ACID/IRINOTECAN [Suspect]
     Indication: BILE DUCT CANCER
     Dosage: UNK
  6. SOTALOL HCL [Concomitant]
     Dosage: UNKNOWN
  7. SOLU-MEDROL [Suspect]
     Indication: PREMEDICATION
     Dosage: 120 MG, SINGLE
     Route: 042
     Dates: start: 20110223, end: 20110223
  8. TRANSIPEG [Concomitant]
     Dosage: UNKNOWN

REACTIONS (6)
  - DYSPNOEA [None]
  - CYANOSIS [None]
  - BRONCHOSPASM [None]
  - CHILLS [None]
  - HYPERTENSION [None]
  - LIVEDO RETICULARIS [None]
